FAERS Safety Report 8045417-1 (Version None)
Quarter: 2012Q1

REPORT INFORMATION
  Report Type: 
  Country: None (occurrence: None)
  Receive Date: 20120113
  Receipt Date: 20120109
  Transmission Date: 20120608
  Serious: Yes (Life-Threatening)
  Sender: FDA-Public Use
  Company Number: AU-B.I. PHARMACEUTICALS,INC./RIDGEFIELD-2011-AU-02474AU

PATIENT
  Sex: Female

DRUGS (16)
  1. NORSPAN [Concomitant]
     Dosage: 0.7143 MG
     Route: 062
  2. ASPIRIN [Concomitant]
     Dates: start: 20111021
  3. ACETAMINOPHEN W/ CODEINE [Concomitant]
     Dosage: 500 MG/30 MG 2 TID PRN
     Route: 048
  4. SPIRONOLACTONE [Concomitant]
     Dosage: 12.5 MG
     Route: 048
  5. VENTOLIN [Concomitant]
     Dosage: 1200 MCG
     Route: 055
  6. FLUTICASONE PROPIONATE/SALMETEROL [Concomitant]
     Dosage: 250MCG-25MCG/ DOSE   2 BD
     Route: 055
  7. NEXIUM [Concomitant]
     Dosage: 40 MG
     Route: 048
  8. NORSPAN [Concomitant]
     Dosage: 1.4286 MG
     Route: 062
  9. PRADAXA [Suspect]
     Indication: ATRIAL FIBRILLATION
     Dosage: 220 MG
     Dates: start: 20110819, end: 20111104
  10. CRANBERRY [Concomitant]
     Dosage: 400 MG
     Route: 048
  11. PANADOL OSTEO [Concomitant]
     Dosage: 3900 MG
     Route: 048
  12. LASIX [Concomitant]
     Dosage: 40 MG
     Route: 048
  13. DIGOXIN [Concomitant]
     Dosage: 125 MCG
     Route: 048
  14. TRAVOPROST AND TIMOLOL [Concomitant]
     Dosage: 1 DROP NOCTE BOTH SIDES
  15. ENDEP [Concomitant]
     Indication: PAIN
     Dosage: 10 MG
     Route: 048
  16. EXFORGE [Concomitant]
     Dosage: 10MG/160 MG 1 DAILY
     Route: 048

REACTIONS (1)
  - GLOMERULAR FILTRATION RATE DECREASED [None]
